FAERS Safety Report 9192380 (Version 1)
Quarter: 2013Q1

REPORT INFORMATION
  Report Type: Spontaneous
  Country: FR (occurrence: FR)
  Receive Date: 20130327
  Receipt Date: 20130327
  Transmission Date: 20140127
  Serious: Yes (Death, Hospitalization, Congenital Anomaly, Other)
  Sender: FDA-Public Use
  Company Number: FR-ELI_LILLY_AND_COMPANY-FR201303005857

PATIENT
  Sex: Female

DRUGS (3)
  1. ZYPREXA [Suspect]
     Dosage: 1 DF, UNKNOWN
     Route: 064
  2. TERALITHE [Concomitant]
     Dosage: 1 DF, UNKNOWN
     Route: 064
     Dates: end: 19970501
  3. STILNOX [Concomitant]
     Dosage: 10 MG, QD
     Route: 064

REACTIONS (10)
  - Ebstein^s anomaly [Fatal]
  - Heart disease congenital [Fatal]
  - Cardiac murmur [Unknown]
  - Right ventricular dysfunction [Unknown]
  - Chest pain [Unknown]
  - Malaise [Unknown]
  - Loss of consciousness [Unknown]
  - Coma [Unknown]
  - Palpitations [Unknown]
  - Foetal exposure during pregnancy [Unknown]
